FAERS Safety Report 4451266-3 (Version None)
Quarter: 2004Q3

REPORT INFORMATION
  Report Type: 
  Country: None (occurrence: None)
  Receive Date: 20040915
  Receipt Date: 20040915
  Transmission Date: 20050211
  Serious: Yes (Other)
  Sender: FDA-Public Use
  Company Number: None

PATIENT

DRUGS (1)
  1. CHLORAPREP-CHLORHEXIDINE- 2 % MEDI-FLEX [Suspect]
     Dosage: AS DIRECTE CUTANEOUS
     Route: 003
     Dates: start: 20040910, end: 20040913

REACTIONS (2)
  - APPLICATION SITE ERYTHEMA [None]
  - APPLICATION SITE VESICLES [None]
